FAERS Safety Report 5270987-6 (Version None)
Quarter: 2007Q1

REPORT INFORMATION
  Report Type: 
  Country: None (occurrence: None)
  Receive Date: 20070321
  Receipt Date: 20070313
  Transmission Date: 20070707
  Serious: Yes (Hospitalization)
  Sender: FDA-Public Use
  Company Number: FR-AVENTIS-200710904FR

PATIENT
  Age: 67 Year
  Sex: Male

DRUGS (3)
  1. FLAGYL [Suspect]
     Indication: PSEUDOMEMBRANOUS COLITIS
     Route: 048
     Dates: start: 20061001
  2. DOXAZOSIN MESYLATE [Concomitant]
  3. XYZALL                             /01530201/ [Concomitant]

REACTIONS (1)
  - ARTHRALGIA [None]
